FAERS Safety Report 8560328-0 (Version None)
Quarter: 2012Q3

REPORT INFORMATION
  Report Type: 
  Country: None (occurrence: None)
  Receive Date: 20120802
  Receipt Date: 20120727
  Transmission Date: 20120928
  Serious: Yes (Hospitalization, Other)
  Sender: FDA-Public Use
  Company Number: IT-ELI_LILLY_AND_COMPANY-IT200702005331

PATIENT
  Age: 54 Year
  Sex: Male

DRUGS (4)
  1. GEMCITABINE HYDROCHLORIDE [Suspect]
     Dosage: 2200 MG, QD
     Route: 042
     Dates: start: 20030408, end: 20030409
  2. DEXAMETHASONE [Concomitant]
  3. ONDANSETRON HYDROCHLORIDE [Concomitant]
  4. VINORELBINE TARTRATE [Concomitant]
     Dosage: 45 MG, QD
     Route: 042
     Dates: start: 20030408, end: 20030409

REACTIONS (3)
  - THROMBOCYTOPENIA [None]
  - THROMBOSIS [None]
  - PERIPHERAL ISCHAEMIA [None]
